FAERS Safety Report 16018182 (Version 1)
Quarter: 2019Q1

REPORT INFORMATION
  Report Type: Spontaneous
  Country: US (occurrence: US)
  Receive Date: 20190228
  Receipt Date: 20190228
  Transmission Date: 20190418
  Serious: Yes (Life-Threatening, Hospitalization)
  Sender: FDA-Public Use
  Company Number: None

PATIENT
  Age: 53 Year
  Sex: Female
  Weight: 65.25 kg

DRUGS (21)
  1. XOPENEX [Concomitant]
     Active Substance: LEVALBUTEROL HYDROCHLORIDE
  2. OMEPRAZOLE. [Concomitant]
     Active Substance: OMEPRAZOLE
  3. FIORICET [Concomitant]
     Active Substance: ACETAMINOPHEN\BUTALBITAL\CAFFEINE
  4. KEPPRA [Concomitant]
     Active Substance: LEVETIRACETAM
  5. MUCINEX [Concomitant]
     Active Substance: GUAIFENESIN
  6. LAMOTRIGINE. [Concomitant]
     Active Substance: LAMOTRIGINE
  7. PREMARIN [Concomitant]
     Active Substance: ESTROGENS, CONJUGATED
  8. RANITIDINE. [Concomitant]
     Active Substance: RANITIDINE
  9. ACIDOPHILUS [Concomitant]
     Active Substance: LACTOBACILLUS ACIDOPHILUS
  10. ADVAIR HFA [Concomitant]
     Active Substance: FLUTICASONE PROPIONATE\SALMETEROL XINAFOATE
  11. MOMETASONE [Concomitant]
     Active Substance: MOMETASONE
  12. FLEXERIL [Concomitant]
     Active Substance: CYCLOBENZAPRINE HYDROCHLORIDE
  13. ALLEGRA [Concomitant]
     Active Substance: FEXOFENADINE HYDROCHLORIDE
  14. MAGNESIUM [Concomitant]
     Active Substance: MAGNESIUM
  15. TART CHERRY EXTRACT [Concomitant]
  16. RIBOFLAVIN [Concomitant]
     Active Substance: RIBOFLAVIN
  17. VITAMIN D [Concomitant]
     Active Substance: CHOLECALCIFEROL
  18. AZELTAMINE [Concomitant]
  19. TYLENOL [Concomitant]
     Active Substance: ACETAMINOPHEN
  20. CENTRUM SILVER [Concomitant]
     Active Substance: MINERALS\VITAMINS
  21. XOLAIR [Suspect]
     Active Substance: OMALIZUMAB
     Indication: ASTHMA
     Route: 058
     Dates: start: 20150201, end: 20181127

REACTIONS (2)
  - Heart rate increased [None]
  - Idiosyncratic drug reaction [None]

NARRATIVE: CASE EVENT DATE: 20181127
